FAERS Safety Report 4418744-4 (Version None)
Quarter: 2004Q3

REPORT INFORMATION
  Report Type: 
  Country: None (occurrence: None)
  Receive Date: 20040809
  Receipt Date: 20040107
  Transmission Date: 20050211
  Serious: No
  Sender: FDA-Public Use
  Company Number: US-GLAXOSMITHKLINE-A0491913A

PATIENT
  Age: 39 Year
  Sex: Female

DRUGS (3)
  1. PAROXETINE HCL [Suspect]
     Dosage: 30MG PER DAY
     Route: 048
     Dates: start: 20030101
  2. NAPROXEN [Concomitant]
  3. VICODIN [Concomitant]

REACTIONS (1)
  - CARPAL TUNNEL SYNDROME [None]
